FAERS Safety Report 6071307-X (Version None)
Quarter: 2009Q1

REPORT INFORMATION
  Report Type: 
  Country: None (occurrence: None)
  Receive Date: 20090209
  Receipt Date: 20090204
  Transmission Date: 20090719
  Serious: Yes (Disabling)
  Sender: FDA-Public Use
  Company Number: ES-MERCK-0902ESP00012

PATIENT
  Age: 70 Year
  Sex: Male

DRUGS (3)
  1. TIMOPTIC [Suspect]
     Indication: INTRAOCULAR PRESSURE INCREASED
     Route: 047
     Dates: start: 20010101, end: 20090202
  2. TIMOPTIC [Suspect]
     Route: 047
     Dates: start: 20090203, end: 20090203
  3. TIMOPTIC [Suspect]
     Route: 047
     Dates: start: 20090204

REACTIONS (2)
  - BLINDNESS [None]
  - PHOTOPSIA [None]
